FAERS Safety Report 23475306 (Version 1)
Quarter: 2024Q1

REPORT INFORMATION
  Report Type: Report from Study
  Country: US (occurrence: US)
  Receive Date: 20240204
  Receipt Date: 20240204
  Transmission Date: 20240410
  Serious: No
  Sender: FDA-Public Use
  Company Number: US-EXELIXIS-CABO-22059165

PATIENT
  Sex: Male

DRUGS (1)
  1. CABOMETYX [Suspect]
     Active Substance: CABOZANTINIB S-MALATE
     Indication: Renal cancer
     Dosage: 40 MG, QD
     Route: 048
     Dates: end: 20221229

REACTIONS (11)
  - Blister [Unknown]
  - Scar [Not Recovered/Not Resolved]
  - Adverse drug reaction [Not Recovered/Not Resolved]
  - Impaired healing [Recovering/Resolving]
  - Blood pressure increased [Recovering/Resolving]
  - Road traffic accident [Unknown]
  - Hypoaesthesia [Not Recovered/Not Resolved]
  - Blood thyroid stimulating hormone increased [Unknown]
  - Sluggishness [Unknown]
  - Arthritis [Unknown]
  - Wound [Unknown]
